FAERS Safety Report 23382689 (Version 1)
Quarter: 2024Q1

REPORT INFORMATION
  Report Type: Spontaneous
  Country: CN (occurrence: CN)
  Receive Date: 20240109
  Receipt Date: 20240109
  Transmission Date: 20240410
  Serious: Yes (Other)
  Sender: FDA-Public Use
  Company Number: CN-PFIZER INC-PV202400001454

PATIENT
  Age: 25 Year
  Sex: Female
  Weight: 68 kg

DRUGS (1)
  1. HEMABATE [Suspect]
     Active Substance: CARBOPROST TROMETHAMINE
     Indication: Uterine hypotonus
     Dosage: 250 UG, 1X/DAY
     Route: 030
     Dates: start: 20231224, end: 20231224

REACTIONS (5)
  - Chest discomfort [Recovered/Resolved]
  - Heart rate decreased [Recovered/Resolved]
  - Blood pressure increased [Recovered/Resolved]
  - Burning sensation [Recovered/Resolved]
  - Hyperhidrosis [Recovered/Resolved]

NARRATIVE: CASE EVENT DATE: 20231224
